FAERS Safety Report 24880885 (Version 3)
Quarter: 2025Q2

REPORT INFORMATION
  Report Type: Spontaneous
  Country: US (occurrence: US)
  Receive Date: 20250124
  Receipt Date: 20250603
  Transmission Date: 20250716
  Serious: No
  Sender: ELI LILLY AND COMPANY
  Company Number: US-ELI_LILLY_AND_COMPANY-US202501016118

PATIENT
  Age: 56 Year
  Sex: Male

DRUGS (5)
  1. ADCIRCA [Suspect]
     Active Substance: TADALAFIL
     Indication: Pulmonary arterial hypertension
     Dosage: 40 MG, ONCE DAILY
     Route: 048
     Dates: start: 202103
  2. UPTRAVI [Suspect]
     Active Substance: SELEXIPAG
     Indication: Product used for unknown indication
     Route: 065
  3. UPTRAVI [Suspect]
     Active Substance: SELEXIPAG
     Route: 065
     Dates: start: 20250331
  4. UPTRAVI [Suspect]
     Active Substance: SELEXIPAG
     Dosage: 1800 UG, DAILY (800 MCG IN AM AND 1000 MCG IN PM)
     Route: 065
  5. OPSUMIT [Concomitant]
     Active Substance: MACITENTAN
     Indication: Product used for unknown indication
     Route: 065

REACTIONS (11)
  - Weight abnormal [Unknown]
  - Abdominal distension [Unknown]
  - Memory impairment [Unknown]
  - Diarrhoea [Unknown]
  - Dyspnoea exertional [Unknown]
  - Fatigue [Unknown]
  - Swelling face [Unknown]
  - Dyspepsia [Unknown]
  - Headache [Recovering/Resolving]
  - Dyspnoea [Not Recovered/Not Resolved]
  - Dizziness [Unknown]
